FAERS Safety Report 9630579 (Version 2)
Quarter: 2013Q4

REPORT INFORMATION
  Report Type: Report from Study
  Country: GB (occurrence: GB)
  Receive Date: 20131018
  Receipt Date: 20131121
  Transmission Date: 20140711
  Serious: Yes (Other)
  Sender: FDA-Public Use
  Company Number: GB-MERCK-1310GBR007403

PATIENT
  Age: 68 Year
  Sex: Male
  Weight: 101.5 kg

DRUGS (16)
  1. DEXAMETHASONE [Suspect]
     Indication: PLASMA CELL MYELOMA
     Dosage: 40 MG, UNK
     Route: 048
     Dates: start: 20120313
  2. REVLIMID [Suspect]
     Indication: PLASMA CELL MYELOMA
     Dosage: 25 MG, DAILY
     Route: 048
     Dates: start: 20120313
  3. ACYCLOVIR [Concomitant]
     Indication: PRODUCT USED FOR UNKNOWN INDICATION
     Dosage: UNK
     Route: 065
     Dates: start: 20120313
  4. CALCICHEW [Concomitant]
     Indication: PRODUCT USED FOR UNKNOWN INDICATION
     Dosage: UNK
     Route: 065
     Dates: start: 200701
  5. CALCICHEW [Concomitant]
     Dosage: UNK
     Route: 065
     Dates: start: 20121204
  6. CYCLIZINE [Concomitant]
     Indication: PRODUCT USED FOR UNKNOWN INDICATION
     Dosage: UNK
     Route: 065
     Dates: start: 20120606
  7. DALTEPARIN SODIUM [Concomitant]
     Indication: PRODUCT USED FOR UNKNOWN INDICATION
     Dosage: UNK
     Route: 065
     Dates: start: 20120313
  8. DALTEPARIN SODIUM [Concomitant]
     Dosage: UNK
     Route: 065
     Dates: start: 20120327
  9. FLUCONAZOLE [Concomitant]
     Indication: PRODUCT USED FOR UNKNOWN INDICATION
     Dosage: UNK
     Route: 065
     Dates: start: 20120313
  10. GABAPENTIN [Concomitant]
     Indication: PRODUCT USED FOR UNKNOWN INDICATION
     Dosage: UNK
     Route: 065
     Dates: start: 201002
  11. FILGRASTIM [Concomitant]
     Indication: PRODUCT USED FOR UNKNOWN INDICATION
     Dosage: UNK
     Route: 065
     Dates: start: 20121218
  12. FILGRASTIM [Concomitant]
     Dosage: UNK
     Route: 065
     Dates: start: 20120731
  13. METOCLOPRAMIDE [Concomitant]
     Dosage: UNK
     Dates: start: 20120313
  14. OMEPRAZOLE [Concomitant]
     Dosage: UNK
     Dates: start: 2007
  15. ACETAMINOPHEN [Concomitant]
     Dosage: UNK
     Dates: start: 20061027
  16. SANDO-K [Concomitant]
     Dosage: UNK
     Dates: start: 20121227

REACTIONS (1)
  - Basal cell carcinoma [Unknown]
